FAERS Safety Report 12869416 (Version 1)
Quarter: 2016Q4

REPORT INFORMATION
  Report Type: Report from Study
  Country: US (occurrence: US)
  Receive Date: 20161021
  Receipt Date: 20161021
  Transmission Date: 20170207
  Serious: Yes (Other)
  Sender: FDA-Public Use
  Company Number: US-MALLINCKRODT-T201605054

PATIENT
  Age: 53 Year
  Sex: Male

DRUGS (2)
  1. REPOSITORY CORTICOTROPIN INJECTION [Suspect]
     Active Substance: CORTICOTROPIN
     Indication: PROTEINURIA
     Dosage: 80 UNITS, TWICE PER WEEK (TUESDAY AND FRIDAY)
     Route: 030
     Dates: start: 20160712
  2. REPOSITORY CORTICOTROPIN INJECTION [Suspect]
     Active Substance: CORTICOTROPIN
     Indication: NEPHROTIC SYNDROME

REACTIONS (4)
  - Injection site nodule [Recovering/Resolving]
  - Nocturia [Not Recovered/Not Resolved]
  - Abnormal weight gain [Not Recovered/Not Resolved]
  - Abnormal sensation in eye [Not Recovered/Not Resolved]

NARRATIVE: CASE EVENT DATE: 201607
